FAERS Safety Report 8254304-5 (Version None)
Quarter: 2012Q2

REPORT INFORMATION
  Report Type: 
  Country: None (occurrence: None)
  Receive Date: 20120402
  Receipt Date: 20120323
  Transmission Date: 20120825
  Serious: No
  Sender: FDA-Public Use
  Company Number: US-AMGEN-USASP2012018976

PATIENT
  Age: 71 Year
  Sex: Female

DRUGS (1)
  1. ENBREL [Suspect]
     Indication: PSORIASIS
     Dosage: 50 MG EVERY 72 TO 96 HOURS
     Route: 058
     Dates: start: 20050520

REACTIONS (5)
  - DRUG INEFFECTIVE [None]
  - BREAST PAIN [None]
  - ERUCTATION [None]
  - ABDOMINAL PAIN UPPER [None]
  - PSORIASIS [None]
